FAERS Safety Report 6273076-7 (Version None)
Quarter: 2009Q3

REPORT INFORMATION
  Report Type: 
  Country: None (occurrence: None)
  Receive Date: 20090716
  Receipt Date: 20090716
  Transmission Date: 20100115
  Serious: No
  Sender: FDA-Public Use
  Company Number: None

PATIENT
  Sex: Female

DRUGS (1)
  1. LAMICTAL [Suspect]
     Indication: BIPOLAR I DISORDER
     Dosage: 100MG ONCE DAILY P.O. GENERIC SINCE 6/09
     Route: 048
     Dates: start: 20090601

REACTIONS (4)
  - ANGER [None]
  - FORMICATION [None]
  - IRRITABILITY [None]
  - MOOD ALTERED [None]
